FAERS Safety Report 13833975 (Version 2)
Quarter: 2017Q3

REPORT INFORMATION
  Report Type: Spontaneous
  Country: FR (occurrence: FR)
  Receive Date: 20170804
  Receipt Date: 20170816
  Transmission Date: 20171127
  Serious: Yes (Hospitalization)
  Sender: FDA-Public Use
  Company Number: FR-CONCORDIA PHARMACEUTICALS INC.-GSH201708-004528

PATIENT
  Sex: Male

DRUGS (9)
  1. ALFUZOSIN EXTENDED-RELEASE TABLET 10 MG [Suspect]
     Active Substance: ALFUZOSIN
     Indication: PRODUCT USED FOR UNKNOWN INDICATION
     Route: 048
     Dates: start: 201606
  2. PERMIXON [Concomitant]
     Active Substance: HERBALS\SAW PALMETTO
  3. DOLIPRANE [Concomitant]
     Active Substance: ACETAMINOPHEN
  4. TRIATEC [Concomitant]
     Active Substance: RAMIPRIL
  5. EFFEXOR [Suspect]
     Active Substance: VENLAFAXINE HYDROCHLORIDE
     Indication: PRODUCT USED FOR UNKNOWN INDICATION
     Route: 048
     Dates: start: 201604
  6. KARDEGIC [Concomitant]
     Active Substance: ASPIRIN LYSINE
  7. LERCANIDIPINE [Concomitant]
     Active Substance: LERCANIDIPINE
  8. VERATRAN 5 MG TABLET [Suspect]
     Active Substance: CLOTIAZEPAM
     Indication: PRODUCT USED FOR UNKNOWN INDICATION
     Route: 048
     Dates: start: 201604
  9. AMLOR [Suspect]
     Active Substance: AMLODIPINE BESYLATE
     Indication: PRODUCT USED FOR UNKNOWN INDICATION
     Route: 048
     Dates: start: 201605

REACTIONS (1)
  - Parkinsonism [Not Recovered/Not Resolved]

NARRATIVE: CASE EVENT DATE: 2016
